FAERS Safety Report 19190293 (Version 1)
Quarter: 2021Q2

REPORT INFORMATION
  Report Type: Spontaneous
  Country: DK (occurrence: DK)
  Receive Date: 20210428
  Receipt Date: 20210428
  Transmission Date: 20210717
  Serious: Yes (Other)
  Sender: FDA-Public Use
  Company Number: DK-BIOGEN-2021BI01002764

PATIENT
  Age: 47 Year
  Sex: Female

DRUGS (1)
  1. TECFIDERA [Suspect]
     Active Substance: DIMETHYL FUMARATE
     Indication: MULTIPLE SCLEROSIS
     Route: 048
     Dates: start: 2016

REACTIONS (5)
  - Tongue fungal infection [Recovered/Resolved]
  - Herpes zoster [Unknown]
  - Fungal skin infection [Recovered/Resolved]
  - Cervix neoplasm [Unknown]
  - Retinal detachment [Unknown]

NARRATIVE: CASE EVENT DATE: 202001
